FAERS Safety Report 13547011 (Version 2)
Quarter: 2017Q2

REPORT INFORMATION
  Report Type: Spontaneous
  Country: US (occurrence: US)
  Receive Date: 20170515
  Receipt Date: 20170608
  Transmission Date: 20170830
  Serious: Yes (Other)
  Sender: FDA-Public Use
  Company Number: US-CELGENEUS-USA-20170501709

PATIENT
  Sex: Female

DRUGS (3)
  1. THALOMID [Suspect]
     Active Substance: THALIDOMIDE
     Indication: HEREDITARY HAEMORRHAGIC TELANGIECTASIA
     Dosage: 50 MILLIGRAM
     Route: 048
     Dates: start: 200312
  2. THALOMID [Suspect]
     Active Substance: THALIDOMIDE
     Dosage: 400 MILLIGRAM
     Route: 048
     Dates: start: 201404
  3. THALOMID [Suspect]
     Active Substance: THALIDOMIDE
     Dosage: 50-300MG
     Route: 048
     Dates: start: 200403

REACTIONS (1)
  - Hereditary haemorrhagic telangiectasia [Unknown]
